FAERS Safety Report 7234338-X (Version None)
Quarter: 2011Q1

REPORT INFORMATION
  Report Type: 
  Country: None (occurrence: None)
  Receive Date: 20110119
  Receipt Date: 20110104
  Transmission Date: 20110831
  Serious: Yes (Hospitalization)
  Sender: FDA-Public Use
  Company Number: CA-GENENTECH-254331

PATIENT
  Sex: Male
  Weight: 81.633 kg

DRUGS (5)
  1. PREDNISONE [Concomitant]
     Indication: BRONCHOSPASM
  2. OMALIZUMAB [Suspect]
     Indication: ASTHMA
     Dosage: 150 MG, Q4W
     Route: 058
     Dates: start: 20071102
  3. ASPIRIN [Concomitant]
     Indication: PRODUCT USED FOR UNKNOWN INDICATION
  4. VENTOLIN [Concomitant]
     Indication: BRONCHOSPASM
  5. SEREVENT [Concomitant]
     Indication: BRONCHOSPASM
     Dosage: UNK, BID

REACTIONS (4)
  - DIZZINESS [None]
  - BRONCHITIS [None]
  - BRONCHOSPASM [None]
  - SINUSITIS [None]
